FAERS Safety Report 24737120 (Version 1)
Quarter: 2024Q4

REPORT INFORMATION
  Report Type: Spontaneous
  Country: US (occurrence: US)
  Receive Date: 20241216
  Receipt Date: 20241216
  Transmission Date: 20250115
  Serious: No
  Sender: ABBVIE
  Company Number: US-ABBVIE-6045076

PATIENT
  Sex: Female

DRUGS (2)
  1. RISANKIZUMAB [Suspect]
     Active Substance: RISANKIZUMAB
     Indication: Psoriasis
     Route: 058
  2. HEPATITIS B VIRUS VACCINE [Concomitant]
     Active Substance: HEPATITIS B VIRUS VACCINE
     Indication: Product used for unknown indication

REACTIONS (1)
  - Immunodeficiency [Not Recovered/Not Resolved]
